FAERS Safety Report 7465629-5 (Version None)
Quarter: 2011Q2

REPORT INFORMATION
  Report Type: 
  Country: None (occurrence: None)
  Receive Date: 20110509
  Receipt Date: 20110330
  Transmission Date: 20111010
  Serious: No
  Sender: FDA-Public Use
  Company Number: US-TYCO HEALTHCARE/MALLINCKRODT-T201100707

PATIENT
  Age: 60 Year
  Sex: Male

DRUGS (1)
  1. PENNSAID [Suspect]
     Indication: PAIN IN EXTREMITY
     Dosage: 10 DROPS QD
     Route: 048
     Dates: start: 20110329, end: 20110330

REACTIONS (1)
  - INCORRECT ROUTE OF DRUG ADMINISTRATION [None]
